FAERS Safety Report 8522634 (Version 2)
Quarter: 2013Q2

REPORT INFORMATION
  Report Type: Spontaneous
  Country: US (occurrence: US)
  Receive Date: 20120419
  Receipt Date: 20130401
  Transmission Date: 20140414
  Serious: Yes (Other)
  Sender: FDA-Public Use
  Company Number: US-GLAXOSMITHKLINE-A0794736A

PATIENT
  Age: 81 Year
  Sex: Female
  Weight: 59.9 kg

DRUGS (4)
  1. AVANDIA [Suspect]
     Indication: DIABETES MELLITUS
     Dosage: 8MG PER DAY
     Route: 048
     Dates: start: 20050201, end: 20070302
  2. LEVOTHYROXINE [Concomitant]
  3. FOSINOPRIL [Concomitant]
  4. GLIPIZIDE [Concomitant]

REACTIONS (2)
  - Cardiac failure congestive [Unknown]
  - Cardiac disorder [Unknown]
